FAERS Safety Report 19306921 (Version 1)
Quarter: 2021Q2

REPORT INFORMATION
  Report Type: Spontaneous
  Country: JP (occurrence: JP)
  Receive Date: 20210526
  Receipt Date: 20210526
  Transmission Date: 20210717
  Serious: Yes (Other)
  Sender: FDA-Public Use
  Company Number: NVSJ2021JP007996

PATIENT
  Age: 24 Year
  Sex: Female
  Weight: 25.8 kg

DRUGS (2)
  1. PHENOBARBITAL. [Suspect]
     Active Substance: PHENOBARBITAL
     Indication: CEREBRAL PALSY
     Dosage: UNK
     Route: 048
  2. TEGRETOL [Suspect]
     Active Substance: CARBAMAZEPINE
     Indication: CEREBRAL PALSY
     Dosage: UNK
     Route: 048

REACTIONS (1)
  - Thyroxine free decreased [Unknown]
